FAERS Safety Report 15979544 (Version 1)
Quarter: 2019Q1

REPORT INFORMATION
  Report Type: Spontaneous
  Country: AT (occurrence: AT)
  Receive Date: 20190219
  Receipt Date: 20190219
  Transmission Date: 20190418
  Serious: Yes (Other)
  Sender: FDA-Public Use
  Company Number: AT-ELI_LILLY_AND_COMPANY-AT201901007447

PATIENT
  Age: 22 Year
  Sex: Male
  Weight: 80.6 kg

DRUGS (19)
  1. TEMESTA [LORAZEPAM] [Suspect]
     Active Substance: LORAZEPAM
     Dosage: 7.25 MG, UNK
     Dates: start: 20180521, end: 20180521
  2. WELLBUTRIN [Suspect]
     Active Substance: BUPROPION HYDROCHLORIDE
     Indication: PRODUCT USED FOR UNKNOWN INDICATION
     Dosage: 150 MG, UNKNOWN
     Route: 065
     Dates: start: 20180519, end: 20180521
  3. ZYPREXA [Suspect]
     Active Substance: OLANZAPINE
     Dosage: 20 MG, UNKNOWN
     Route: 065
     Dates: start: 20180519, end: 20180519
  4. CISORDINOL [ZUCLOPENTHIXOL ACETATE] [Suspect]
     Active Substance: ZUCLOPENTHIXOL ACETATE
     Indication: PRODUCT USED FOR UNKNOWN INDICATION
     Dosage: 20 MG, UNKNOWN
     Route: 065
     Dates: start: 20180519, end: 20180521
  5. CISORDINOL [ZUCLOPENTHIXOL ACETATE] [Suspect]
     Active Substance: ZUCLOPENTHIXOL ACETATE
     Dosage: 65 MG, UNKNOWN
     Route: 065
     Dates: start: 20180524, end: 20180524
  6. TEMESTA [LORAZEPAM] [Suspect]
     Active Substance: LORAZEPAM
     Dosage: 4.5 MG, UNK
     Dates: start: 20180518, end: 20180518
  7. TEMESTA [LORAZEPAM] [Suspect]
     Active Substance: LORAZEPAM
     Dosage: 7.25 MG, UNK
     Dates: start: 20180520, end: 20180520
  8. TEMESTA [LORAZEPAM] [Suspect]
     Active Substance: LORAZEPAM
     Dosage: 1.25 MG, UNK
     Dates: start: 20180523, end: 20180523
  9. ZYPREXA [Suspect]
     Active Substance: OLANZAPINE
     Indication: PRODUCT USED FOR UNKNOWN INDICATION
     Dosage: 10 MG, UNKNOWN
     Route: 065
     Dates: start: 20180518, end: 20180518
  10. TRUXAL [CHLORPROTHIXENE] [Suspect]
     Active Substance: CHLORPROTHIXENE
     Dosage: 150 MG, UNKNOWN
     Dates: start: 20180522, end: 20180522
  11. TRUXAL [CHLORPROTHIXENE] [Suspect]
     Active Substance: CHLORPROTHIXENE
     Dosage: 50 MG, UNKNOWN
     Route: 065
     Dates: start: 20180523, end: 20180523
  12. CISORDINOL [ZUCLOPENTHIXOL ACETATE] [Suspect]
     Active Substance: ZUCLOPENTHIXOL ACETATE
     Dosage: 55 MG, UNKNOWN
     Route: 065
     Dates: start: 20180523, end: 20180523
  13. TEMESTA [LORAZEPAM] [Suspect]
     Active Substance: LORAZEPAM
     Dosage: 3.75 MG, UNK
     Dates: start: 20180522, end: 20180522
  14. ZYPREXA [Suspect]
     Active Substance: OLANZAPINE
     Dosage: 30 MG, UNKNOWN
     Route: 065
     Dates: start: 20180520
  15. CISORDINOL [ZUCLOPENTHIXOL ACETATE] [Suspect]
     Active Substance: ZUCLOPENTHIXOL ACETATE
     Dosage: 100 MG, UNKNOWN
     Route: 065
     Dates: start: 20180522, end: 20180522
  16. TEMESTA [LORAZEPAM] [Suspect]
     Active Substance: LORAZEPAM
     Indication: PRODUCT USED FOR UNKNOWN INDICATION
     Dosage: 5 MG, UNK
     Dates: end: 20180517
  17. CISORDINOL [ZUCLOPENTHIXOL ACETATE] [Suspect]
     Active Substance: ZUCLOPENTHIXOL ACETATE
     Dosage: 25 MG, UNKNOWN
     Route: 065
     Dates: start: 20180525, end: 20180525
  18. TEMESTA [LORAZEPAM] [Suspect]
     Active Substance: LORAZEPAM
     Dosage: 5.5 MG, UNK
     Dates: start: 20180519, end: 20180519
  19. TRUXAL [CHLORPROTHIXENE] [Suspect]
     Active Substance: CHLORPROTHIXENE
     Indication: PRODUCT USED FOR UNKNOWN INDICATION
     Dosage: 150 MG, UNKNOWN
     Route: 065
     Dates: start: 20180520, end: 20180520

REACTIONS (2)
  - Incontinence [Recovered/Resolved]
  - Urine output decreased [Recovered/Resolved]

NARRATIVE: CASE EVENT DATE: 20180521
